FAERS Safety Report 22400248 (Version 1)
Quarter: 2023Q2

REPORT INFORMATION
  Report Type: Spontaneous
  Country: US (occurrence: None)
  Receive Date: 20230601
  Receipt Date: 20230601
  Transmission Date: 20230721
  Serious: Yes (Disabling, Other)
  Sender: FDA-Public Use
  Company Number: None

PATIENT
  Age: 63 Year
  Sex: Male
  Weight: 119.25 kg

DRUGS (20)
  1. TRADJENTA [Suspect]
     Active Substance: LINAGLIPTIN
     Indication: Type 2 diabetes mellitus
     Dosage: 1 TABLET DAILY ORAL
     Route: 048
     Dates: start: 20230508, end: 20230522
  2. NAPROXEN [Concomitant]
     Active Substance: NAPROXEN
  3. METHOTREXATE [Concomitant]
     Active Substance: METHOTREXATE
  4. TAMSULOSIN [Concomitant]
     Active Substance: TAMSULOSIN
  5. TRAMADOL ER [Concomitant]
     Active Substance: TRAMADOL HYDROCHLORIDE
  6. METHOCARBAMOL [Concomitant]
     Active Substance: METHOCARBAMOL
  7. ATORVASTATIN [Concomitant]
     Active Substance: ATORVASTATIN
  8. VALSARTAN [Concomitant]
     Active Substance: VALSARTAN
  9. VICODIN [Concomitant]
  10. JUBILA [Concomitant]
  11. SKYRIZI [Concomitant]
     Active Substance: RISANKIZUMAB-RZAA
  12. ALL VITAMINS [Concomitant]
  13. CANNABIS SATIVA SEED OIL\HERBALS [Concomitant]
     Active Substance: CANNABIS SATIVA SEED OIL\HERBALS
  14. PIPER METHYSTICUM ROOT [Concomitant]
     Active Substance: PIPER METHYSTICUM ROOT
  15. COENZYME Q10 [Concomitant]
     Active Substance: DIETARY SUPPLEMENT\UBIDECARENONE
  16. PREBIOTIC [Concomitant]
  17. GINGER [Concomitant]
     Active Substance: GINGER
  18. MAGNESIUM [Concomitant]
     Active Substance: MAGNESIUM
  19. DEA [Concomitant]
  20. VITAMIN B [Concomitant]
     Active Substance: VITAMIN B

REACTIONS (11)
  - Feeling abnormal [None]
  - Arthralgia [None]
  - Impaired work ability [None]
  - Arthropathy [None]
  - Arthralgia [None]
  - Fine motor skill dysfunction [None]
  - Arthralgia [None]
  - Arthralgia [None]
  - Loss of personal independence in daily activities [None]
  - Impaired driving ability [None]
  - Gait disturbance [None]

NARRATIVE: CASE EVENT DATE: 20230520
